FAERS Safety Report 19036905 (Version 1)
Quarter: 2021Q1

REPORT INFORMATION
  Report Type: Spontaneous
  Country: US (occurrence: US)
  Receive Date: 20210322
  Receipt Date: 20210322
  Transmission Date: 20210420
  Serious: No
  Sender: FDA-Public Use
  Company Number: US-SA-2021SA094524

PATIENT
  Age: 14 Year
  Sex: Male

DRUGS (1)
  1. DUPIXENT [Suspect]
     Active Substance: DUPILUMAB
     Dosage: 200MG, OTHER
     Route: 058
     Dates: start: 202012

REACTIONS (4)
  - Conversion disorder [Unknown]
  - Nervousness [Unknown]
  - Weight increased [Unknown]
  - Agitation [Unknown]

NARRATIVE: CASE EVENT DATE: 20201230
